FAERS Safety Report 7927823-6 (Version None)
Quarter: 2011Q4

REPORT INFORMATION
  Report Type: 
  Country: None (occurrence: None)
  Receive Date: 20111118
  Receipt Date: 20111110
  Transmission Date: 20120403
  Serious: Yes (Death, Hospitalization, Other)
  Sender: FDA-Public Use
  Company Number: VE-AMGEN-VENSP2011059557

PATIENT
  Sex: Male

DRUGS (1)
  1. ENBREL [Suspect]
     Indication: PRODUCT USED FOR UNKNOWN INDICATION
     Dosage: UNK
     Dates: start: 20110501

REACTIONS (2)
  - KNEE OPERATION [None]
  - DEATH [None]
